FAERS Safety Report 11641007 (Version 5)
Quarter: 2016Q2

REPORT INFORMATION
  Report Type: Spontaneous
  Country: US (occurrence: US)
  Receive Date: 20151019
  Receipt Date: 20160504
  Transmission Date: 20160815
  Serious: No
  Sender: FDA-Public Use
  Company Number: US-ACTELION PHARMACEUTICALS US, INC.-A-NJ2015-125670

PATIENT
  Age: 75 Year
  Sex: Female

DRUGS (2)
  1. VALCHLOR [Suspect]
     Active Substance: MECHLORETHAMINE
     Indication: MYCOSIS FUNGOIDES
     Dosage: UNK
     Route: 061
     Dates: start: 20150131, end: 2015
  2. VALCHLOR [Suspect]
     Active Substance: MECHLORETHAMINE
     Dosage: UNK
     Route: 061
     Dates: start: 2015

REACTIONS (7)
  - Application site discolouration [Not Recovered/Not Resolved]
  - Application site exfoliation [Unknown]
  - Application site rash [Unknown]
  - Skin irritation [Unknown]
  - Application site pain [Unknown]
  - Application site erythema [Unknown]
  - Application site pruritus [Not Recovered/Not Resolved]
